FAERS Safety Report 25210763 (Version 4)
Quarter: 2025Q4

REPORT INFORMATION
  Report Type: Spontaneous
  Country: US (occurrence: US)
  Receive Date: 20250417
  Receipt Date: 20251113
  Transmission Date: 20260117
  Serious: Yes (Hospitalization)
  Sender: BAUSCH AND LOMB
  Company Number: US-BAUSCH-BL-2025-004904

PATIENT
  Sex: Female

DRUGS (1)
  1. DILTIAZEM [Suspect]
     Active Substance: DILTIAZEM
     Indication: Atrial fibrillation
     Route: 065

REACTIONS (4)
  - Hospitalisation [Unknown]
  - Syncope [Recovered/Resolved]
  - Dehydration [Unknown]
  - Adverse event [Unknown]
